FAERS Safety Report 23100280 (Version 1)
Quarter: 2023Q4

REPORT INFORMATION
  Report Type: Spontaneous
  Country: US (occurrence: US)
  Receive Date: 20231024
  Receipt Date: 20231024
  Transmission Date: 20240109
  Serious: Yes (Other)
  Sender: FDA-Public Use
  Company Number: US-Blueprint Medicines Corporation-1603

PATIENT
  Sex: Female

DRUGS (1)
  1. AYVAKIT [Suspect]
     Active Substance: AVAPRITINIB
     Indication: Systemic mastocytosis
     Route: 065
     Dates: start: 20220613

REACTIONS (18)
  - Mental impairment [Unknown]
  - Brain fog [Unknown]
  - Cognitive disorder [Unknown]
  - Vomiting [Unknown]
  - Nausea [Unknown]
  - Lacrimation increased [Unknown]
  - Visual impairment [Unknown]
  - Lacrimal disorder [Unknown]
  - Peripheral swelling [Unknown]
  - Eye swelling [Unknown]
  - Periorbital swelling [Unknown]
  - Malaise [Unknown]
  - Palpitations [Unknown]
  - Anxiety [Unknown]
  - Depression [Unknown]
  - Fatigue [Unknown]
  - Diarrhoea [Unknown]
  - Decreased appetite [Unknown]
